FAERS Safety Report 25996095 (Version 1)
Quarter: 2025Q4

REPORT INFORMATION
  Report Type: Spontaneous
  Country: US (occurrence: US)
  Receive Date: 20251104
  Receipt Date: 20251104
  Transmission Date: 20260118
  Serious: Yes (Hospitalization)
  Sender: SCPHARMACEUTICALS
  Company Number: US-SCPHARMACEUTICALS-2025-SCPH-US000708

PATIENT

DRUGS (1)
  1. FUROSCIX [Suspect]
     Active Substance: FUROSEMIDE
     Indication: Fluid retention
     Dosage: 80 MG, DAILY
     Route: 058
     Dates: start: 20251017, end: 20251017

REACTIONS (2)
  - Condition aggravated [Recovered/Resolved]
  - Urinary retention [Recovered/Resolved]

NARRATIVE: CASE EVENT DATE: 20251017
